FAERS Safety Report 6870487-3 (Version None)
Quarter: 2010Q3

REPORT INFORMATION
  Report Type: 
  Country: None (occurrence: None)
  Receive Date: 20100723
  Receipt Date: 20100716
  Transmission Date: 20110219
  Serious: No
  Sender: FDA-Public Use
  Company Number: US-BIOGENIDEC-2010BI024774

PATIENT
  Age: 49 Year
  Sex: Female

DRUGS (4)
  1. TYSABRI [Suspect]
     Indication: MULTIPLE SCLEROSIS
     Route: 042
     Dates: start: 20041206, end: 20041206
  2. TYSABRI [Suspect]
     Route: 042
     Dates: start: 20090727
  3. SOLU-MEDROL [Concomitant]
     Indication: FATIGUE
  4. SOLU-MEDROL [Concomitant]
     Indication: BALANCE DISORDER

REACTIONS (5)
  - ARTIFICIAL CROWN PROCEDURE [None]
  - ENDODONTIC PROCEDURE [None]
  - MULTIPLE SCLEROSIS RELAPSE [None]
  - STRESS [None]
  - TOOTH REPAIR [None]
